FAERS Safety Report 9380605 (Version 2)
Quarter: 2013Q3

REPORT INFORMATION
  Report Type: Spontaneous
  Country: US (occurrence: US)
  Receive Date: 20130702
  Receipt Date: 20130820
  Transmission Date: 20140515
  Serious: Yes (Other)
  Sender: FDA-Public Use
  Company Number: US-PFIZER INC-2013194297

PATIENT
  Age: 63 Year
  Sex: Female
  Weight: 54.42 kg

DRUGS (4)
  1. ADVIL COLD AND SINUS [Suspect]
     Indication: SINUS CONGESTION
     Dosage: 200/30 MG, TWO TIMES A DAY
     Route: 048
     Dates: end: 20130628
  2. ADVIL COLD AND SINUS [Suspect]
     Indication: SINUS HEADACHE
  3. ATORVASTATIN [Concomitant]
     Indication: BLOOD CHOLESTEROL INCREASED
     Dosage: UNK
  4. OMEPRAZOLE [Concomitant]
     Dosage: UNK, ONCE A DAY

REACTIONS (2)
  - Rash pruritic [Not Recovered/Not Resolved]
  - Condition aggravated [Not Recovered/Not Resolved]
